FAERS Safety Report 7164061-1 (Version None)
Quarter: 2010Q4

REPORT INFORMATION
  Report Type: 
  Country: None (occurrence: None)
  Receive Date: 20101203
  Receipt Date: 20101118
  Transmission Date: 20110411
  Serious: Yes (Hospitalization)
  Sender: FDA-Public Use
  Company Number: JPI-P-013039

PATIENT
  Age: 72 Year
  Sex: Male

DRUGS (2)
  1. XYREM [Suspect]
     Indication: PRODUCT USED FOR UNKNOWN INDICATION
     Dosage: ( 4.5 GM (2.25 GM, 2 IN 1 D), ORAL) (UNKNOWN, ORAL) (9 GM (4.5 GM, 2 IN1 D, ORAL)
     Route: 048
     Dates: start: 20021204
  2. XYREM [Suspect]
     Indication: PRODUCT USED FOR UNKNOWN INDICATION
     Dosage: ( 4.5 GM (2.25 GM, 2 IN 1 D), ORAL) (UNKNOWN, ORAL) (9 GM (4.5 GM, 2 IN1 D, ORAL)
     Route: 048
     Dates: start: 20101013

REACTIONS (1)
  - CARDIAC DISORDER [None]
